FAERS Safety Report 4503446-6 (Version None)
Quarter: 2004Q4

REPORT INFORMATION
  Report Type: 
  Country: None (occurrence: None)
  Receive Date: 20041112
  Receipt Date: 20041101
  Transmission Date: 20050328
  Serious: Yes (Hospitalization)
  Sender: FDA-Public Use
  Company Number: CIP04002328

PATIENT
  Age: 77 Year
  Sex: Female

DRUGS (7)
  1. ACTONEL [Suspect]
     Dosage: SEE IMAGE
     Route: 048
     Dates: start: 20040701, end: 20041019
  2. ACTONEL [Suspect]
     Dosage: SEE IMAGE
     Route: 048
     Dates: start: 20041031, end: 20041031
  3. ZYPREXA [Concomitant]
  4. XANAX [Concomitant]
  5. AMBIEN [Concomitant]
  6. TYLENOL W/ CODEINE NO. 3 [Concomitant]
  7. NORVASC /DEN/(AMLODIPINE BESILATE) [Concomitant]

REACTIONS (7)
  - ARTHROPATHY [None]
  - ASTHENIA [None]
  - CONSTIPATION [None]
  - DIZZINESS [None]
  - DYSSTASIA [None]
  - FALL [None]
  - MOBILITY DECREASED [None]
